FAERS Safety Report 12631690 (Version 2)
Quarter: 2016Q3

REPORT INFORMATION
  Report Type: Spontaneous
  Country: US (occurrence: US)
  Receive Date: 20160808
  Receipt Date: 20160808
  Transmission Date: 20161109
  Serious: No
  Sender: FDA-Public Use
  Company Number: US-BEH-2015055346

PATIENT
  Sex: Male
  Weight: 60 kg

DRUGS (21)
  1. AUGMENTIN [Concomitant]
     Active Substance: AMOXICILLIN\CLAVULANATE POTASSIUM
  2. FOLIC ACID. [Concomitant]
     Active Substance: FOLIC ACID
  3. VALCYTE [Concomitant]
     Active Substance: VALGANCICLOVIR HYDROCHLORIDE
  4. EPIPEN [Concomitant]
     Active Substance: EPINEPHRINE
  5. PREDNISONE. [Concomitant]
     Active Substance: PREDNISONE
  6. ACETAMINOPHEN. [Concomitant]
     Active Substance: ACETAMINOPHEN
  7. PRAVASTATIN. [Concomitant]
     Active Substance: PRAVASTATIN
  8. LEXAPRO [Concomitant]
     Active Substance: ESCITALOPRAM OXALATE
  9. POLYSACCHARIDE IRON [Concomitant]
  10. HIZENTRA [Suspect]
     Active Substance: HUMAN IMMUNOGLOBULIN G
     Indication: IMMUNODEFICIENCY COMMON VARIABLE
     Route: 058
  11. RANITIDINE. [Concomitant]
     Active Substance: RANITIDINE
  12. LMX [Concomitant]
     Active Substance: LIDOCAINE
  13. RAPAMUNE [Concomitant]
     Active Substance: SIROLIMUS
  14. MAGNESIUM [Concomitant]
     Active Substance: MAGNESIUM
  15. ASPIRIN. [Concomitant]
     Active Substance: ASPIRIN
  16. LIDOCAINE/PRILOCAINE [Concomitant]
     Active Substance: LIDOCAINE\PRILOCAINE
  17. TACROLIMUS. [Concomitant]
     Active Substance: TACROLIMUS
  18. DIPHENHYDRAMINE. [Concomitant]
     Active Substance: DIPHENHYDRAMINE
  19. COZAAR [Concomitant]
     Active Substance: LOSARTAN POTASSIUM
  20. LOSARTAN-HCTZ [Concomitant]
     Active Substance: HYDROCHLOROTHIAZIDE\LOSARTAN
  21. LORATADINE. [Concomitant]
     Active Substance: LORATADINE

REACTIONS (1)
  - Viral infection [Unknown]
